FAERS Safety Report 13298157 (Version 2)
Quarter: 2017Q1

REPORT INFORMATION
  Report Type: Spontaneous
  Country: US (occurrence: US)
  Receive Date: 20170306
  Receipt Date: 20170329
  Transmission Date: 20170428
  Serious: Yes (Hospitalization, Other)
  Sender: FDA-Public Use
  Company Number: US-FRESENIUS KABI-FK201701798

PATIENT
  Age: 48 Year
  Sex: Female
  Weight: 92 kg

DRUGS (13)
  1. HEPARIN SODIUM (MANUFACTURER UNKNOWN) [Suspect]
     Active Substance: HEPARIN SODIUM
     Route: 041
     Dates: start: 20170125, end: 20170125
  2. COUMADIN [Suspect]
     Active Substance: WARFARIN SODIUM
     Indication: FACTOR V LEIDEN MUTATION
     Route: 048
     Dates: start: 20170121, end: 20170123
  3. HEPARIN SODIUM (MANUFACTURER UNKNOWN) [Suspect]
     Active Substance: HEPARIN SODIUM
     Route: 041
     Dates: start: 20170126, end: 20170126
  4. COUMADIN [Suspect]
     Active Substance: WARFARIN SODIUM
     Route: 048
     Dates: start: 20170129, end: 20170129
  5. HEPARIN SODIUM (MANUFACTURER UNKNOWN) [Suspect]
     Active Substance: HEPARIN SODIUM
     Indication: FACTOR V LEIDEN MUTATION
     Route: 041
     Dates: start: 20170119, end: 20170122
  6. TACROLIMUS. [Suspect]
     Active Substance: TACROLIMUS
     Indication: PROPHYLAXIS AGAINST TRANSPLANT REJECTION
     Route: 048
     Dates: start: 20170121
  7. COUMADIN [Suspect]
     Active Substance: WARFARIN SODIUM
     Route: 048
     Dates: start: 20170124, end: 20170124
  8. COUMADIN [Suspect]
     Active Substance: WARFARIN SODIUM
     Route: 048
     Dates: start: 20170125, end: 20170126
  9. COUMADIN [Suspect]
     Active Substance: WARFARIN SODIUM
     Route: 048
     Dates: start: 20170131
  10. COUMADIN [Suspect]
     Active Substance: WARFARIN SODIUM
     Route: 048
     Dates: start: 20170124, end: 20170124
  11. COUMADIN [Suspect]
     Active Substance: WARFARIN SODIUM
     Route: 048
     Dates: start: 20170127, end: 20170128
  12. HEPARIN SODIUM (MANUFACTURER UNKNOWN) [Suspect]
     Active Substance: HEPARIN SODIUM
     Route: 041
     Dates: start: 20170123, end: 20170123
  13. COUMADIN [Suspect]
     Active Substance: WARFARIN SODIUM
     Route: 048
     Dates: start: 20170130, end: 20170130

REACTIONS (2)
  - Retroperitoneal haemorrhage [Recovered/Resolved]
  - Perirenal haematoma [Unknown]

NARRATIVE: CASE EVENT DATE: 20170122
